FAERS Safety Report 8772371 (Version 1)
Quarter: 2012Q4

REPORT INFORMATION
  Report Type: 
  Country: SG (occurrence: SG)
  Receive Date: 20120906
  Receipt Date: 20120906
  Transmission Date: 20130627
  Serious: Yes (Other)
  Sender: FDA-Public Use
  Company Number: SG-009507513-1208SGP012175

PATIENT

DRUGS (1)
  1. FOSAMAX [Suspect]
     Indication: OSTEOPOROSIS
     Route: 048

REACTIONS (3)
  - Surgery [Recovering/Resolving]
  - Femur fracture [Recovering/Resolving]
  - Fall [None]
